FAERS Safety Report 8776698 (Version 1)
Quarter: 2012Q4

REPORT INFORMATION
  Report Type: 
  Country: US (occurrence: US)
  Receive Date: 20120907
  Receipt Date: 20120907
  Transmission Date: 20130627
  Serious: Yes (Other)
  Sender: FDA-Public Use
  Company Number: US-ELI_LILLY_AND_COMPANY-US201209000760

PATIENT
  Age: 56 Year
  Sex: Female

DRUGS (2)
  1. CYMBALTA [Suspect]
     Indication: DEPRESSION
     Dosage: 120mg, daily
     Dates: start: 2007
  2. VICODIN [Concomitant]

REACTIONS (4)
  - Exfoliative rash [Unknown]
  - Pain of skin [Unknown]
  - Wound [Unknown]
  - Hyperhidrosis [Unknown]
